FAERS Safety Report 5930651-4 (Version None)
Quarter: 2008Q4

REPORT INFORMATION
  Report Type: 
  Country: None (occurrence: None)
  Receive Date: 20081021
  Receipt Date: 20081006
  Transmission Date: 20090506
  Serious: Yes (Congenital Anomaly, Other)
  Sender: FDA-Public Use
  Company Number: 2008100021

PATIENT

DRUGS (3)
  1. MEPROBAMATE [Suspect]
     Dosage: (4000 MG), TRANSPLACENTAL
     Route: 064
  2. CHLORDIAZEPOXIDE [Suspect]
     Dosage: (300 MG), TRANSPLACENTAL
     Route: 064
  3. FOLIC ACID [Suspect]
     Dosage: (120 MG), TRANSPLACENTAL
     Route: 064

REACTIONS (14)
  - ABNORMAL PALMAR/PLANTAR CREASES [None]
  - CONGENITAL ANOMALY [None]
  - CONGENITAL NOSE MALFORMATION [None]
  - DRUG EXPOSURE DURING PREGNANCY [None]
  - DYSMORPHISM [None]
  - FOETAL ALCOHOL SYNDROME [None]
  - HIGH ARCHED PALATE [None]
  - INTELLIGENCE TEST ABNORMAL [None]
  - LIP DISORDER [None]
  - MATERNAL ALCOHOL USE [None]
  - MATERNAL DRUGS AFFECTING FOETUS [None]
  - MICROCEPHALY [None]
  - STRABISMUS [None]
  - SUICIDE ATTEMPT [None]
